FAERS Safety Report 24180015 (Version 4)
Quarter: 2025Q3

REPORT INFORMATION
  Report Type: Report from Study
  Country: CA (occurrence: CA)
  Receive Date: 20240806
  Receipt Date: 20250901
  Transmission Date: 20251020
  Serious: Yes (Other)
  Sender: TAKEDA
  Company Number: CA-TAKEDA-2024TUS078064

PATIENT
  Sex: Female

DRUGS (2)
  1. VEDOLIZUMAB [Suspect]
     Active Substance: VEDOLIZUMAB
     Indication: Colitis microscopic
  2. ENTOCORT [Concomitant]
     Active Substance: BUDESONIDE

REACTIONS (2)
  - Parkinson^s disease [Not Recovered/Not Resolved]
  - Faeces soft [Unknown]
